FAERS Safety Report 13488989 (Version 1)
Quarter: 2017Q2

REPORT INFORMATION
  Report Type: Spontaneous
  Country: US (occurrence: US)
  Receive Date: 20170427
  Receipt Date: 20170427
  Transmission Date: 20170830
  Serious: No
  Sender: FDA-Public Use
  Company Number: US-MYLANLABS-2016M1025457

PATIENT
  Sex: Female
  Weight: 46.26 kg

DRUGS (1)
  1. METHIMAZOLE TABLETS, USP [Suspect]
     Active Substance: METHIMAZOLE
     Indication: BASEDOW^S DISEASE
     Dosage: 10 MG, BID
     Route: 048
     Dates: start: 201603

REACTIONS (1)
  - Abdominal pain [Not Recovered/Not Resolved]
